FAERS Safety Report 4569759-7 (Version None)
Quarter: 2005Q1

REPORT INFORMATION
  Report Type: 
  Country: None (occurrence: None)
  Receive Date: 20050131
  Receipt Date: 20050125
  Transmission Date: 20050727
  Serious: Yes (Hospitalization)
  Sender: FDA-Public Use
  Company Number: TPA2005A00010

PATIENT
  Age: 44 Year
  Sex: Male
  Weight: 151.5014 kg

DRUGS (15)
  1. ACTOS [Suspect]
     Indication: DIABETES MELLITUS NON-INSULIN-DEPENDENT
     Dosage: 45 MG, 1 IN 1 D, PER ORAL
     Route: 048
     Dates: start: 20040101
  2. COZAAR [Concomitant]
  3. HUMALOG 75/25 MIS (INSULIN LISPRO) [Concomitant]
  4. FUROSEMIDE [Concomitant]
  5. ALLOPURINOL [Concomitant]
  6. LISINOPRIL [Concomitant]
  7. METOPROLOL TARTRATE [Concomitant]
  8. LIPITOR [Concomitant]
  9. AMITRIPTYLINE (AMITRIPTYLINE) [Concomitant]
  10. PREDNISONE [Concomitant]
  11. WARFARIN SODIUM [Concomitant]
  12. ISOSORBIDE (ISOSORBIDE) [Concomitant]
  13. LANOXIN [Concomitant]
  14. ASPIRIN [Concomitant]
  15. COLCHICINE (COLCHICINE) [Concomitant]

REACTIONS (3)
  - CONDITION AGGRAVATED [None]
  - GOUT [None]
  - LOCALISED INFECTION [None]
